FAERS Safety Report 5446902-9 (Version None)
Quarter: 2007Q3

REPORT INFORMATION
  Report Type: 
  Country: None (occurrence: None)
  Receive Date: 20070802
  Receipt Date: 20070323
  Transmission Date: 20080115
  Serious: Yes (Hospitalization)
  Sender: FDA-Public Use
  Company Number: US-JNJFOC-20051201864

PATIENT
  Age: 10 Year
  Sex: Female
  Weight: 36.2878 kg

DRUGS (5)
  1. CHILDREN'S MOTRIN [Suspect]
     Indication: ABDOMINAL PAIN
     Dosage: DOSAGE FORM UNSPECIFIED, 3 IN 1 DAY, FOR 2-3 DAYS
     Dates: start: 20040501, end: 20040501
  2. CHILDREN'S MOTRIN [Suspect]
     Indication: HEADACHE
     Dosage: DOSAGE FORM UNSPECIFIED, 3 IN 1 DAY, FOR 2-3 DAYS
     Dates: start: 20040501, end: 20040501
  3. CHILDREN'S MOTRIN [Suspect]
     Indication: PYREXIA
     Dosage: DOSAGE FORM UNSPECIFIED, 3 IN 1 DAY, FOR 2-3 DAYS
     Dates: start: 20040501, end: 20040501
  4. ACETAMINOPHEN [Concomitant]
  5. MAGNESIUM CITRATE (MAGNESIUM CITRATE) [Concomitant]

REACTIONS (1)
  - TOXIC EPIDERMAL NECROLYSIS [None]
